FAERS Safety Report 4378739-6 (Version None)
Quarter: 2004Q2

REPORT INFORMATION
  Report Type: 
  Country: None (occurrence: None)
  Receive Date: 20040609
  Receipt Date: 20040521
  Transmission Date: 20050107
  Serious: Yes (Hospitalization)
  Sender: FDA-Public Use
  Company Number: USA040568253

PATIENT
  Age: 73 Year
  Sex: Female

DRUGS (17)
  1. HUMULIN R [Suspect]
  2. ALLOPURINOL [Concomitant]
  3. ASPIRIN [Concomitant]
  4. CIPRO [Concomitant]
  5. COLCHICINE [Concomitant]
  6. DIGOXIN [Concomitant]
  7. LASIX [Concomitant]
  8. NEURONTIN [Concomitant]
  9. HEPARIN [Concomitant]
  10. LISINOPRIL [Concomitant]
  11. SOLU-MEDROL [Concomitant]
  12. REGLAN [Concomitant]
  13. METOLAZONE [Concomitant]
  14. KCL (POTASSIUM CHLORIDE) [Concomitant]
  15. PRAMIPEXOLE [Concomitant]
  16. TRIAMCINOLONE [Concomitant]
  17. EPOGEN [Concomitant]

REACTIONS (4)
  - ANAEMIA [None]
  - ARTHRALGIA [None]
  - BLOOD GLUCOSE INCREASED [None]
  - WEIGHT DECREASED [None]
